FAERS Safety Report 8120053-7 (Version None)
Quarter: 2012Q1

REPORT INFORMATION
  Report Type: 
  Country: None (occurrence: None)
  Receive Date: 20120207
  Receipt Date: 20120127
  Transmission Date: 20120608
  Serious: Yes (Death, Hospitalization)
  Sender: FDA-Public Use
  Company Number: US-BAXTER-2012BH000289

PATIENT
  Sex: Female

DRUGS (1)
  1. DIANEAL [Suspect]
     Indication: PERITONEAL DIALYSIS
     Route: 033
     Dates: end: 20111228

REACTIONS (6)
  - INFECTION [None]
  - NEOPLASM MALIGNANT [None]
  - SKIN ULCER [None]
  - URINARY TRACT INFECTION [None]
  - UROSEPSIS [None]
  - ARTERIOSCLEROSIS CORONARY ARTERY [None]
